FAERS Safety Report 9896857 (Version 2)
Quarter: 2014Q1

REPORT INFORMATION
  Report Type: Spontaneous
  Country: AR (occurrence: AR)
  Receive Date: 20140214
  Receipt Date: 20140314
  Transmission Date: 20141002
  Serious: Yes (Hospitalization)
  Sender: FDA-Public Use
  Company Number: AR-009507513-1402ARG003869

PATIENT
  Age: 50 Year
  Sex: Female

DRUGS (4)
  1. VICTRELIS [Suspect]
     Indication: HEPATIC CIRRHOSIS
     Dosage: 800 MG, Q8H
     Route: 048
     Dates: start: 20140107, end: 20140128
  2. VICTRELIS [Suspect]
     Indication: HEPATITIS C
  3. PEGASYS [Suspect]
     Indication: HEPATITIS C
     Dosage: 180 MICROGRAM, QW, INJECTABLE SOLUTION
     Route: 058
     Dates: start: 20131212
  4. RIBAVIRIN [Suspect]
     Indication: HEPATITIS C
     Dosage: 1000MG, QD
     Dates: start: 20131212

REACTIONS (6)
  - Diarrhoea haemorrhagic [Recovered/Resolved]
  - Epistaxis [Recovered/Resolved]
  - Anaemia [Unknown]
  - Epistaxis [Recovered/Resolved]
  - Melaena [Recovered/Resolved]
  - Intestinal haemorrhage [Recovered/Resolved]
